FAERS Safety Report 5683198-7 (Version None)
Quarter: 2008Q1

REPORT INFORMATION
  Report Type: 
  Country: None (occurrence: None)
  Receive Date: 20080327
  Receipt Date: 20080227
  Transmission Date: 20080703
  Serious: No
  Sender: FDA-Public Use
  Company Number: US-BOEHRINGER INGELHEIM GMBH, GERMANY-2008-BP-01733BP

PATIENT
  Age: 40 Year
  Sex: Female

DRUGS (2)
  1. MIRAPEX [Suspect]
     Indication: PARKINSON'S DISEASE
     Dates: start: 20060330
  2. MIRAPEX [Suspect]
     Dates: end: 20071101

REACTIONS (3)
  - PATHOLOGICAL GAMBLING [None]
  - POLYDIPSIA [None]
  - WEIGHT INCREASED [None]
